FAERS Safety Report 14660499 (Version 1)
Quarter: 2018Q1

REPORT INFORMATION
  Report Type: Spontaneous
  Country: US (occurrence: US)
  Receive Date: 20180320
  Receipt Date: 20180320
  Transmission Date: 20180509
  Serious: Yes (Hospitalization, Other)
  Sender: FDA-Public Use
  Company Number: US-GLAXOSMITHKLINE-US2018045467

PATIENT
  Age: 66 Year
  Sex: Female

DRUGS (4)
  1. SYMBICORT [Concomitant]
     Active Substance: BUDESONIDE\FORMOTEROL FUMARATE DIHYDRATE
  2. VENTOLIN HFA [Suspect]
     Active Substance: ALBUTEROL SULFATE
     Indication: CHRONIC OBSTRUCTIVE PULMONARY DISEASE
     Dosage: 2 PUFF(S), PRN
     Route: 055
  3. TIKOSYN [Concomitant]
     Active Substance: DOFETILIDE
  4. SPIRIVA [Concomitant]
     Active Substance: TIOTROPIUM BROMIDE MONOHYDRATE

REACTIONS (9)
  - Blood pressure fluctuation [Not Recovered/Not Resolved]
  - Heart rate increased [Unknown]
  - Trismus [Recovering/Resolving]
  - Facial pain [Recovering/Resolving]
  - Atrial fibrillation [Not Recovered/Not Resolved]
  - Cardioversion [Unknown]
  - Sialoadenitis [Recovering/Resolving]
  - Wrong technique in product usage process [Unknown]
  - Cyst [Recovering/Resolving]

NARRATIVE: CASE EVENT DATE: 201708
